FAERS Safety Report 12051211 (Version 1)
Quarter: 2016Q1

REPORT INFORMATION
  Report Type: Spontaneous
  Country: None (occurrence: None)
  Receive Date: 20160208
  Receipt Date: 20160208
  Transmission Date: 20160526
  Serious: Yes (Life-Threatening)
  Sender: FDA-Public Use
  Company Number: None

PATIENT
  Age: 53 Year
  Sex: Female

DRUGS (6)
  1. ALLEGRA [Concomitant]
     Active Substance: FEXOFENADINE HYDROCHLORIDE
  2. ULTRAM [Suspect]
     Active Substance: TRAMADOL HYDROCHLORIDE
  3. TRAMADOL 50 MG [Suspect]
     Active Substance: TRAMADOL
     Indication: PAIN
     Dosage: 1 PILL, THREE TIMES DAILY, TAKEN BY MOUTH
  4. PROVENTIL [Concomitant]
     Active Substance: ALBUTEROL
  5. QVAR [Concomitant]
     Active Substance: BECLOMETHASONE DIPROPIONATE
  6. BENADRYL [Concomitant]
     Active Substance: DIPHENHYDRAMINE HYDROCHLORIDE

REACTIONS (8)
  - Intentional product use issue [None]
  - Drug withdrawal syndrome [None]
  - Adverse drug reaction [None]
  - Migraine [None]
  - Pruritus [None]
  - Drug ineffective [None]
  - Blood blister [None]
  - Product substitution issue [None]

NARRATIVE: CASE EVENT DATE: 20160128
